FAERS Safety Report 14304876 (Version 1)
Quarter: 2017Q4

REPORT INFORMATION
  Report Type: Spontaneous
  Country: US (occurrence: US)
  Receive Date: 20171219
  Receipt Date: 20171219
  Transmission Date: 20180321
  Serious: Yes (Other)
  Sender: FDA-Public Use
  Company Number: US-OTSUKA-15210271

PATIENT
  Sex: Female

DRUGS (1)
  1. ABILIFY [Suspect]
     Active Substance: ARIPIPRAZOLE
     Indication: PRODUCT USED FOR UNKNOWN INDICATION
     Dosage: 2MG FOR 1 WEEK AND THEN BACK TO 1 MG.
     Route: 065
     Dates: start: 20100618, end: 20100718

REACTIONS (4)
  - Peripheral coldness [Unknown]
  - Gait disturbance [Unknown]
  - Muscle spasms [Recovering/Resolving]
  - Wrong technique in product usage process [Unknown]
